FAERS Safety Report 4560007-0 (Version None)
Quarter: 2005Q1

REPORT INFORMATION
  Report Type: 
  Country: None (occurrence: None)
  Receive Date: 20050121
  Receipt Date: 20050121
  Transmission Date: 20050727
  Serious: No
  Sender: FDA-Public Use
  Company Number: None

PATIENT
  Age: 43 Year
  Sex: Female
  Weight: 86.2 kg

DRUGS (1)
  1. DICLOFENAC SODIUM [Suspect]
     Indication: BURSITIS
     Dosage: 2 DOSES DAILY, ORAL
     Route: 048
     Dates: start: 20040625, end: 20040625

REACTIONS (3)
  - ABDOMINAL PAIN UPPER [None]
  - DIARRHOEA [None]
  - NAUSEA [None]
